FAERS Safety Report 8075963-6 (Version None)
Quarter: 2012Q1

REPORT INFORMATION
  Report Type: 
  Country: None (occurrence: None)
  Receive Date: 20120127
  Receipt Date: 20101217
  Transmission Date: 20120608
  Serious: No
  Sender: FDA-Public Use
  Company Number: US-GLAXOSMITHKLINE-A0900377A

PATIENT
  Age: 40 Year
  Sex: Female

DRUGS (2)
  1. NO CONCURRENT MEDICATION [Concomitant]
  2. BUPROPION HYDROCHLORIDE [Suspect]
     Indication: DEPRESSION
     Dosage: 75MG PER DAY
     Route: 048
     Dates: start: 20101101

REACTIONS (6)
  - WRONG TECHNIQUE IN DRUG USAGE PROCESS [None]
  - IMPATIENCE [None]
  - ABNORMAL BEHAVIOUR [None]
  - ANGER [None]
  - MATERNAL EXPOSURE DURING PREGNANCY [None]
  - IRRITABILITY [None]
